FAERS Safety Report 4516959-8 (Version None)
Quarter: 2004Q4

REPORT INFORMATION
  Report Type: 
  Country: None (occurrence: None)
  Receive Date: 20041130
  Receipt Date: 20041117
  Transmission Date: 20050328
  Serious: Yes (Hospitalization)
  Sender: FDA-Public Use
  Company Number: STA-AE-04-MTX-534

PATIENT
  Age: 44 Year
  Sex: Male

DRUGS (2)
  1. METHOTREXATE [Suspect]
     Indication: RHEUMATOID ARTHRITIS
     Dosage: 12.5 MG 1 X PER 1 WK, ORAL
     Route: 048
     Dates: start: 19930101
  2. FOLIC ACID [Concomitant]

REACTIONS (3)
  - CEREBROVASCULAR DISORDER [None]
  - EPILEPSY [None]
  - LUMBAR VERTEBRAL FRACTURE [None]
